FAERS Safety Report 10230393 (Version 1)
Quarter: 2014Q2

REPORT INFORMATION
  Report Type: Spontaneous
  Country: US (occurrence: None)
  Receive Date: 20140610
  Receipt Date: 20140610
  Transmission Date: 20141212
  Serious: Yes (Other)
  Sender: FDA-Public Use
  Company Number: None

PATIENT
  Age: 42 Year
  Sex: Female
  Weight: 49.9 kg

DRUGS (1)
  1. SYNTHROID BRAND NAME [Suspect]
     Indication: THYROID CANCER
     Route: 048
     Dates: start: 20140415, end: 20140430

REACTIONS (8)
  - Pyrexia [None]
  - Hyperhidrosis [None]
  - Dizziness [None]
  - Alopecia [None]
  - Neck pain [None]
  - Breast discomfort [None]
  - Product substitution issue [None]
  - Product quality issue [None]
